FAERS Safety Report 6083625-X (Version None)
Quarter: 2009Q1

REPORT INFORMATION
  Report Type: 
  Country: None (occurrence: None)
  Receive Date: 20090219
  Receipt Date: 20090216
  Transmission Date: 20090719
  Serious: Yes (Hospitalization)
  Sender: FDA-Public Use
  Company Number: IT-ASTRAZENECA-2009SE00804

PATIENT
  Age: 26283 Day
  Sex: Male

DRUGS (7)
  1. SIMESTAT [Suspect]
     Indication: METABOLIC SYNDROME
     Route: 048
     Dates: start: 20031001, end: 20090215
  2. SIMESTAT [Suspect]
     Indication: ISCHAEMIC CARDIOMYOPATHY
     Route: 048
     Dates: start: 20031001, end: 20090215
  3. METFORMINA [Concomitant]
  4. ASPIRIN [Concomitant]
  5. LOBIVON [Concomitant]
     Route: 048
  6. UNIPRIL [Concomitant]
     Route: 048
  7. IRBESARTAN [Concomitant]
     Route: 048

REACTIONS (1)
  - GLOMERULONEPHRITIS MEMBRANOUS [None]
